FAERS Safety Report 24199718 (Version 1)
Quarter: 2024Q3

REPORT INFORMATION
  Report Type: Report from Study
  Country: HN (occurrence: HN)
  Receive Date: 20240812
  Receipt Date: 20240812
  Transmission Date: 20241017
  Serious: Yes (Disabling)
  Sender: MYLAN
  Company Number: HN-MYLANLABS-2024M1074012

PATIENT
  Sex: Female
  Weight: 59.87 kg

DRUGS (1)
  1. LIPITOR [Suspect]
     Active Substance: ATORVASTATIN CALCIUM
     Indication: Blood cholesterol
     Dosage: 40 MILLIGRAM, QD
     Route: 048
     Dates: start: 202301

REACTIONS (1)
  - Presbyopia [Not Recovered/Not Resolved]
